FAERS Safety Report 23996528 (Version 1)
Quarter: 2024Q2

REPORT INFORMATION
  Report Type: Spontaneous
  Country: TW (occurrence: TW)
  Receive Date: 20240620
  Receipt Date: 20240620
  Transmission Date: 20240716
  Serious: Yes (Other)
  Sender: FDA-Public Use
  Company Number: TW-PAIPHARMA-2024-TW-000009

PATIENT
  Age: 11 Month
  Sex: Male
  Weight: 2.71 kg

DRUGS (1)
  1. PREDNISOLONE [Suspect]
     Active Substance: PREDNISOLONE
     Indication: Respiratory failure
     Dosage: 2 MG/KG/DAY

REACTIONS (1)
  - Panniculitis [Unknown]
